FAERS Safety Report 25479403 (Version 1)
Quarter: 2025Q2

REPORT INFORMATION
  Report Type: Other
  Country: PT (occurrence: PT)
  Receive Date: 20250625
  Receipt Date: 20250625
  Transmission Date: 20250717
  Serious: Yes (Life-Threatening, Hospitalization, Other)
  Sender: EMD SERONO INC
  Company Number: PT-Merck Healthcare KGaA-2025030814

PATIENT
  Age: 50 Year
  Sex: Female

DRUGS (1)
  1. LEVOTHYROXINE [Suspect]
     Active Substance: LEVOTHYROXINE
     Indication: Post procedural hypothyroidism

REACTIONS (7)
  - Cardiogenic shock [Recovered/Resolved]
  - Thyrotoxic cardiomyopathy [Recovered/Resolved]
  - Cardiac failure acute [Recovered/Resolved]
  - Cardiac ventricular thrombosis [Recovered/Resolved]
  - Pulmonary embolism [Recovered/Resolved]
  - Hyperthyroidism [Recovered/Resolved]
  - Ventricular tachycardia [Recovered/Resolved]
